FAERS Safety Report 14224113 (Version 1)
Quarter: 2017Q4

REPORT INFORMATION
  Report Type: Spontaneous
  Country: CA (occurrence: CA)
  Receive Date: 20171126
  Receipt Date: 20171126
  Transmission Date: 20180321
  Serious: Yes (Other)
  Sender: FDA-Public Use
  Company Number: CA-TEVA-2017-CA-826255

PATIENT
  Age: 28 Year
  Sex: Female

DRUGS (1)
  1. 6- MERCAPTOPURINE [Suspect]
     Active Substance: MERCAPTOPURINE
     Indication: CROHN^S DISEASE
     Dosage: 100 MILLIGRAM DAILY;
     Route: 065
     Dates: start: 201406

REACTIONS (2)
  - Crohn^s disease [Unknown]
  - Drug ineffective [Unknown]
